FAERS Safety Report 15321602 (Version 2)
Quarter: 2023Q4

REPORT INFORMATION
  Report Type: Spontaneous
  Country: US (occurrence: US)
  Receive Date: 20180827
  Receipt Date: 20231017
  Transmission Date: 20240110
  Serious: Yes (Death, Other)
  Sender: FDA-Public Use
  Company Number: US-SA-2018SA207697

PATIENT
  Age: 53 Year
  Sex: Male
  Weight: 61 kg

DRUGS (14)
  1. TERIFLUNOMIDE [Suspect]
     Active Substance: TERIFLUNOMIDE
     Dosage: UNK UNK, QD
     Route: 048
     Dates: start: 2014
  2. TERIFLUNOMIDE [Suspect]
     Active Substance: TERIFLUNOMIDE
     Dosage: 14 MG, QD
     Route: 048
     Dates: start: 20180104
  3. COMBIVENT [Concomitant]
     Active Substance: ALBUTEROL SULFATE\IPRATROPIUM BROMIDE
     Indication: Chronic obstructive pulmonary disease
     Dosage: 120 UNK, QID
     Route: 055
  4. AMANTADINE [Concomitant]
     Active Substance: AMANTADINE
     Indication: Multiple sclerosis
     Dosage: 100 MG, BID
     Route: 048
  5. ASPIRIN [Concomitant]
     Active Substance: ASPIRIN
     Indication: Cerebrovascular accident
     Dosage: 81 MG, QD
     Route: 048
  6. ATORVASTATIN [Concomitant]
     Active Substance: ATORVASTATIN
     Indication: Hyperlipidaemia
     Dosage: 20 MG, QD
     Route: 048
  7. BACLOFEN [Concomitant]
     Active Substance: BACLOFEN
     Indication: Multiple sclerosis
     Dosage: 20 MG, TID
     Route: 048
  8. BUPROPION [Concomitant]
     Active Substance: BUPROPION
     Indication: Depression
     Dosage: 300 MG, QD
     Route: 048
  9. VALIUM [Concomitant]
     Active Substance: DIAZEPAM
     Indication: Multiple sclerosis
     Dosage: 5 MG, TID
     Route: 048
  10. GABAPENTIN [Concomitant]
     Active Substance: GABAPENTIN
     Indication: Multiple sclerosis
     Dosage: 400 MG, TID
     Route: 048
  11. MIRTAZAPINE [Concomitant]
     Active Substance: MIRTAZAPINE
     Indication: Depression
     Dosage: 30 MG, HS
     Route: 048
  12. PRIMIDONE [Concomitant]
     Active Substance: PRIMIDONE
     Indication: Tremor
     Dosage: 250 MG, TID
     Route: 048
  13. TAMSULOSIN [Concomitant]
     Active Substance: TAMSULOSIN
     Indication: Benign prostatic hyperplasia
     Dosage: 0.4 MG, QD
     Route: 048
  14. TRAMADOL [Concomitant]
     Active Substance: TRAMADOL\TRAMADOL HYDROCHLORIDE
     Indication: Pain
     Dosage: 50 MG, TID
     Route: 048

REACTIONS (6)
  - Multiple sclerosis [Fatal]
  - Urinary retention [Unknown]
  - Urinary tract infection [Unknown]
  - Mental status changes [Unknown]
  - Dysphagia [Unknown]
  - Asthenia [Unknown]

NARRATIVE: CASE EVENT DATE: 20180721
